FAERS Safety Report 20588333 (Version 1)
Quarter: 2022Q1

REPORT INFORMATION
  Report Type: Spontaneous
  Country: US (occurrence: US)
  Receive Date: 20220314
  Receipt Date: 20220314
  Transmission Date: 20220423
  Serious: No
  Sender: FDA-Public Use
  Company Number: US-Global Blood Therapeutics Inc-US-GBT-22-00372

PATIENT
  Age: 11 Year
  Sex: Female

DRUGS (9)
  1. OXBRYTA [Suspect]
     Active Substance: VOXELOTOR
     Indication: Product used for unknown indication
     Route: 048
     Dates: start: 202201, end: 202201
  2. OXBRYTA [Suspect]
     Active Substance: VOXELOTOR
     Route: 048
     Dates: start: 202201, end: 202201
  3. OXBRYTA [Suspect]
     Active Substance: VOXELOTOR
     Dates: start: 202201
  4. OMEGA 3 [Concomitant]
     Active Substance: CAPSAICIN
     Indication: Product used for unknown indication
     Dosage: NOT PROVIDED
  5. ZINC [Concomitant]
     Active Substance: ZINC
     Indication: Product used for unknown indication
     Dosage: NOT PROVIDED
  6. FOLATE SODIUM [Concomitant]
     Active Substance: FOLATE SODIUM
     Indication: Product used for unknown indication
     Dosage: NOT PROVIDED
  7. PROBIOTICS NOS [Concomitant]
     Active Substance: PROBIOTICS NOS
     Indication: Product used for unknown indication
     Dosage: NOT PROVIDED
  8. VITAMINS [Concomitant]
     Active Substance: VITAMINS
     Indication: Product used for unknown indication
     Dosage: NOT PROVIDED
  9. HYDROXYUREA [Concomitant]
     Active Substance: HYDROXYUREA
     Indication: Product used for unknown indication
     Dosage: NOT PROVIDED

REACTIONS (6)
  - Abdominal pain [Unknown]
  - Faeces soft [Unknown]
  - Frequent bowel movements [Unknown]
  - Retching [Recovering/Resolving]
  - Product use complaint [Unknown]
  - Off label use [Unknown]

NARRATIVE: CASE EVENT DATE: 20220101
